FAERS Safety Report 8257713-3 (Version None)
Quarter: 2012Q2

REPORT INFORMATION
  Report Type: 
  Country: None (occurrence: None)
  Receive Date: 20120404
  Receipt Date: 20120327
  Transmission Date: 20120825
  Serious: Yes (Death, Hospitalization)
  Sender: FDA-Public Use
  Company Number: FR-BRISTOL-MYERS SQUIBB COMPANY-16484206

PATIENT
  Age: 47 Year
  Sex: Male

DRUGS (6)
  1. IRBESARTAN AND HYDROCHLOROTHIAZIDE [Suspect]
     Indication: HYPERTENSION
     Dosage: 1DF:300MG/12.5MG
     Route: 048
     Dates: start: 20110901, end: 20111225
  2. BISOPROLOL FUMARATE [Concomitant]
  3. JANUMET [Suspect]
     Indication: TYPE 2 DIABETES MELLITUS
     Dosage: 1DF:50MG/1000MG
     Route: 048
     Dates: start: 20110101, end: 20111225
  4. RAMIPRIL [Suspect]
     Route: 048
     Dates: start: 20110901, end: 20111225
  5. INSULIN [Concomitant]
  6. CLOPIDOGREL BISULFATE AND ASPIRIN [Concomitant]
     Dosage: 1 DF = 75MG/75MG

REACTIONS (3)
  - LACTIC ACIDOSIS [None]
  - RENAL FAILURE [None]
  - OEDEMATOUS PANCREATITIS [None]
